FAERS Safety Report 14844922 (Version 1)
Quarter: 2018Q2

REPORT INFORMATION
  Report Type: Spontaneous
  Country: BR (occurrence: BR)
  Receive Date: 20180504
  Receipt Date: 20180504
  Transmission Date: 20180711
  Serious: Yes (Other)
  Sender: FDA-Public Use
  Company Number: BR-ROCHE-2116283

PATIENT
  Sex: Female

DRUGS (4)
  1. SALINE [Concomitant]
     Active Substance: SODIUM CHLORIDE
     Route: 065
  2. ONTAX [Suspect]
     Active Substance: PACLITAXEL
     Indication: BREAST CANCER
     Route: 042
  3. AVASTIN [Suspect]
     Active Substance: BEVACIZUMAB
     Indication: BREAST CANCER
     Dosage: 400 MG (LOT NUMBER:B724509 - EXPIRE DATE: 30/JUN/2019).
     Route: 042
  4. SALINE [Concomitant]
     Active Substance: SODIUM CHLORIDE
     Route: 065

REACTIONS (2)
  - Blood alkaline phosphatase increased [None]
  - Hepatotoxicity [Recovered/Resolved]

NARRATIVE: CASE EVENT DATE: 20180323
